FAERS Safety Report 18689630 (Version 1)
Quarter: 2020Q4

REPORT INFORMATION
  Report Type: Report from Study
  Country: US (occurrence: US)
  Receive Date: 20201231
  Receipt Date: 20201231
  Transmission Date: 20210114
  Serious: No
  Sender: FDA-Public Use
  Company Number: US-SUNOVION-2020SUN003916

PATIENT

DRUGS (3)
  1. CARBIDOPA. [Concomitant]
     Active Substance: CARBIDOPA
     Dosage: UNK
     Dates: end: 20200312
  2. KYNMOBI [Suspect]
     Active Substance: APOMORPHINE HYDROCHLORIDE
     Dosage: 20 MG
     Route: 060
  3. LEVODOPA [Concomitant]
     Active Substance: LEVODOPA
     Dosage: UNK
     Dates: end: 20200312

REACTIONS (1)
  - Orthostatic hypotension [Unknown]
